FAERS Safety Report 11640795 (Version 1)
Quarter: 2015Q4

REPORT INFORMATION
  Report Type: Spontaneous
  Country: US (occurrence: US)
  Receive Date: 20151019
  Receipt Date: 20151019
  Transmission Date: 20160304
  Serious: No
  Sender: FDA-Public Use
  Company Number: US-GLAXOSMITHKLINE-US2015147387

PATIENT
  Sex: Female

DRUGS (1)
  1. TANZEUM [Suspect]
     Active Substance: ALBIGLUTIDE
     Indication: GLYCOSYLATED HAEMOGLOBIN
     Dosage: 30 MG, WE
     Route: 058
     Dates: start: 201510, end: 20151015

REACTIONS (3)
  - Rash [Unknown]
  - Local swelling [Unknown]
  - Pruritus [Unknown]
